FAERS Safety Report 21676826 (Version 4)
Quarter: 2023Q1

REPORT INFORMATION
  Report Type: Spontaneous
  Country: US (occurrence: US)
  Receive Date: 20221203
  Receipt Date: 20230309
  Transmission Date: 20230418
  Serious: No
  Sender: FDA-Public Use
  Company Number: US-VIIV HEALTHCARE LIMITED-US2022175123

PATIENT
  Age: 66 Year
  Sex: Male

DRUGS (3)
  1. CABENUVA [Suspect]
     Active Substance: CABOTEGRAVIR\RILPIVIRINE
     Indication: HIV infection
     Dosage: UNK UNK, Z (600MG/900MG EVERY-2-MONTH INJECTIONS)
     Route: 030
  2. CABENUVA [Suspect]
     Active Substance: CABOTEGRAVIR\RILPIVIRINE
  3. CABENUVA [Suspect]
     Active Substance: CABOTEGRAVIR\RILPIVIRINE

REACTIONS (3)
  - Product storage error [Unknown]
  - Intercepted product administration error [Unknown]
  - Product complaint [Recovered/Resolved]

NARRATIVE: CASE EVENT DATE: 20221123
